FAERS Safety Report 8492963-2 (Version None)
Quarter: 2012Q3

REPORT INFORMATION
  Report Type: 
  Country: None (occurrence: None)
  Receive Date: 20120706
  Receipt Date: 20120625
  Transmission Date: 20120928
  Serious: Yes (Other)
  Sender: FDA-Public Use
  Company Number: IT-VIIV HEALTHCARE LIMITED-B0812601A

PATIENT
  Age: 7 Month
  Sex: Female

DRUGS (6)
  1. LOPINAVIR AND RITONAVIR [Suspect]
     Indication: HIV INFECTION
     Route: 065
  2. PYRAZINAMIDE [Concomitant]
     Indication: TUBERCULOSIS
     Route: 065
  3. ZIDOVUDINE [Suspect]
     Indication: HIV INFECTION
     Route: 065
  4. LAMIVUDINE (EPIVIR HBV) [Suspect]
     Indication: HIV INFECTION
     Route: 065
  5. RIFAMPICIN [Concomitant]
     Indication: TUBERCULOSIS
     Route: 065
  6. ISONIAZID [Concomitant]
     Indication: TUBERCULOSIS
     Route: 065

REACTIONS (17)
  - TACHYPNOEA [None]
  - IMMUNE RECONSTITUTION SYNDROME [None]
  - TUBERCULOSIS [None]
  - LUNG CONSOLIDATION [None]
  - FAILURE TO THRIVE [None]
  - IRRITABILITY [None]
  - DECREASED APPETITE [None]
  - LUNG NEOPLASM [None]
  - TACHYCARDIA [None]
  - C-REACTIVE PROTEIN INCREASED [None]
  - LYMPHADENOPATHY MEDIASTINAL [None]
  - CRYING [None]
  - NIGHT SWEATS [None]
  - SOCIAL AVOIDANT BEHAVIOUR [None]
  - WHITE BLOOD CELL COUNT ABNORMAL [None]
  - PYREXIA [None]
  - CONDITION AGGRAVATED [None]
